FAERS Safety Report 4581598-X (Version None)
Quarter: 2005Q1

REPORT INFORMATION
  Report Type: 
  Country: None (occurrence: None)
  Receive Date: 20050127
  Receipt Date: 20041112
  Transmission Date: 20050727
  Serious: No
  Sender: FDA-Public Use
  Company Number: US_0411108181

PATIENT
  Age: 8 Year
  Sex: Male
  Weight: 23 kg

DRUGS (2)
  1. STRATTERA [Suspect]
     Indication: ATTENTION DEFICIT/HYPERACTIVITY DISORDER
     Dosage: 40 MG
  2. VITAMINS NOS [Concomitant]

REACTIONS (3)
  - ABDOMINAL PAIN UPPER [None]
  - DRUG INEFFECTIVE [None]
  - STOMACH DISCOMFORT [None]
